FAERS Safety Report 7574354-1 (Version None)
Quarter: 2011Q2

REPORT INFORMATION
  Report Type: 
  Country: None (occurrence: None)
  Receive Date: 20110627
  Receipt Date: 20110616
  Transmission Date: 20111010
  Serious: Yes (Life-Threatening, Hospitalization, Disabling, Other)
  Sender: FDA-Public Use
  Company Number: US-MERCK-1106USA00482

PATIENT
  Age: 60 Year
  Sex: Male

DRUGS (2)
  1. ZOLINZA [Suspect]
     Indication: MYELODYSPLASTIC SYNDROME
     Route: 048
     Dates: start: 20110201, end: 20110510
  2. VIDAZA [Concomitant]
     Route: 065

REACTIONS (9)
  - DELUSION [None]
  - THIRST [None]
  - DRY MOUTH [None]
  - WEIGHT DECREASED [None]
  - HEART RATE INCREASED [None]
  - DIABETIC COMA [None]
  - POLLAKIURIA [None]
  - GENERAL PHYSICAL HEALTH DETERIORATION [None]
  - UNDERDOSE [None]
